FAERS Safety Report 23962061 (Version 3)
Quarter: 2024Q3

REPORT INFORMATION
  Report Type: Spontaneous
  Country: US (occurrence: US)
  Receive Date: 20240611
  Receipt Date: 20240919
  Transmission Date: 20241016
  Serious: No
  Sender: PFIZER
  Company Number: US-PFIZER INC-202400187967

PATIENT
  Age: 13 Year
  Sex: Female
  Weight: 40.1 kg

DRUGS (1)
  1. GENOTROPIN [Suspect]
     Active Substance: SOMATROPIN
     Indication: Short stature
     Dosage: 1.6 MG, 1X/DAY

REACTIONS (2)
  - Poor quality device used [Unknown]
  - Device leakage [Unknown]
